FAERS Safety Report 6593237-7 (Version None)
Quarter: 2010Q1

REPORT INFORMATION
  Report Type: 
  Country: None (occurrence: None)
  Receive Date: 20100222
  Receipt Date: 20100212
  Transmission Date: 20100710
  Serious: Yes (Hospitalization)
  Sender: FDA-Public Use
  Company Number: FR-SANOFI-AVENTIS-2010SA001443

PATIENT
  Age: 55 Year
  Sex: Male
  Weight: 63 kg

DRUGS (11)
  1. RIFATER [Suspect]
     Indication: PULMONARY TUBERCULOSIS
     Dosage: DOSE:6 UNIT(S)
     Route: 048
     Dates: start: 20080625, end: 20080816
  2. MYAMBUTOL [Suspect]
     Indication: PULMONARY TUBERCULOSIS
     Dosage: DOSE:3 UNIT(S)
     Route: 048
     Dates: start: 20080625, end: 20080816
  3. ALLOPURINOL [Suspect]
     Indication: DRUG USE FOR UNKNOWN INDICATION
     Route: 048
     Dates: start: 20080709, end: 20080816
  4. AMLOR [Suspect]
     Route: 048
     Dates: end: 20080816
  5. HALDOL [Suspect]
     Indication: DELIRIUM
     Dates: end: 20080816
  6. LEPTICUR [Concomitant]
     Indication: DELIRIUM
     Dates: end: 20080816
  7. VASELINE [Concomitant]
     Indication: DRUG USE FOR UNKNOWN INDICATION
     Route: 003
     Dates: start: 20080731
  8. DEXERYL ^PIERRE FABRE^ [Concomitant]
     Indication: DRUG USE FOR UNKNOWN INDICATION
     Route: 003
     Dates: start: 20080731
  9. EFFICORT [Concomitant]
     Indication: DRUG USE FOR UNKNOWN INDICATION
     Route: 003
     Dates: start: 20080731
  10. PRITORPLUS [Concomitant]
     Indication: DRUG USE FOR UNKNOWN INDICATION
     Dosage: DOSE:1 UNIT(S)
     Route: 048
     Dates: start: 20080809
  11. ERYTHROCINE [Concomitant]
     Route: 003
     Dates: start: 20080709

REACTIONS (7)
  - CYTOLYTIC HEPATITIS [None]
  - DRUG RASH WITH EOSINOPHILIA AND SYSTEMIC SYMPTOMS [None]
  - EOSINOPHILIA [None]
  - HEPATIC FAILURE [None]
  - LYMPHADENOPATHY [None]
  - PYREXIA [None]
  - RASH [None]
